FAERS Safety Report 8543606-0 (Version None)
Quarter: 2012Q3

REPORT INFORMATION
  Report Type: 
  Country: None (occurrence: None)
  Receive Date: 20120727
  Receipt Date: 20120717
  Transmission Date: 20120928
  Serious: Yes (Hospitalization)
  Sender: FDA-Public Use
  Company Number: JP-VERTEX PHARMACEUTICALS INC.-AE-2012-010885

PATIENT
  Age: 57 Year
  Sex: Male

DRUGS (5)
  1. CORTRIL [Concomitant]
     Route: 048
     Dates: start: 20120703
  2. PEGINTERFERON ALFA-2B [Concomitant]
     Route: 058
     Dates: start: 20120620, end: 20120628
  3. RIBAVIRIN [Concomitant]
     Indication: HEPATITIS C
     Route: 048
     Dates: start: 20120427, end: 20120611
  4. TELAVIC (TELAPREVIR) [Suspect]
     Indication: HEPATITIS C
     Route: 048
     Dates: start: 20120427, end: 20120611
  5. PEGINTERFERON ALFA-2B [Concomitant]
     Route: 058
     Dates: start: 20120427, end: 20120614

REACTIONS (5)
  - BACTERIAL PERICARDITIS [None]
  - HYPOALBUMINAEMIA [None]
  - PLEURAL EFFUSION [None]
  - ASCITES [None]
  - CARDIAC TAMPONADE [None]
